FAERS Safety Report 9228077 (Version 2)
Quarter: 2013Q3

REPORT INFORMATION
  Report Type: Spontaneous
  Country: US (occurrence: US)
  Receive Date: 20130412
  Receipt Date: 20130906
  Transmission Date: 20140515
  Serious: Yes (Other)
  Sender: FDA-Public Use
  Company Number: US-BAYER-2013-045119

PATIENT
  Age: 28 Year
  Sex: Female

DRUGS (22)
  1. YAZ [Suspect]
     Dosage: UNK
     Dates: start: 2007, end: 2011
  2. YASMIN [Suspect]
     Dosage: UNK
     Dates: start: 2007, end: 2011
  3. OCELLA [Suspect]
     Dosage: UNK
     Dates: start: 2007, end: 2011
  4. HYDROCODONE W/ACETAMINOPHEN [Concomitant]
     Indication: PAIN
     Dosage: 5/500 MG EVERY 1-2 Q (EVERY) 6 H ( HOURS) PRN
     Route: 048
     Dates: start: 20101228
  5. CELECOXIB [Concomitant]
     Dosage: 200 MG, UNK
     Route: 048
     Dates: start: 20101228
  6. MOTRIN [Concomitant]
     Dosage: UNK
     Route: 048
     Dates: start: 20101228
  7. METHOCARBAMOL [Concomitant]
     Dosage: 500 MG, UNK
     Route: 048
     Dates: start: 20110111
  8. NAPROSYN [Concomitant]
     Dosage: UNK
     Dates: start: 20110111
  9. VICOPROFEN [Concomitant]
     Indication: PAIN
     Dosage: 7.5 /200 MG TAKE 1 -2 TABLETS EVERY 4-6 HOURS AS NEEDED
     Route: 048
     Dates: start: 20110118
  10. ZOLOFT [Concomitant]
     Dosage: 50 MG, EVERY DAY
     Route: 048
     Dates: start: 20110125
  11. AMBIEN [Concomitant]
     Dosage: 10 MG AT BEDTIME
     Route: 048
     Dates: start: 20110125
  12. LIDODERM [Concomitant]
     Dosage: 5 % APPLY 1 PATCH EVERY DAY, 12 HOURS ON, 12 HOURS OFF
     Route: 061
     Dates: start: 20110303
  13. VOLTAREN [Concomitant]
     Dosage: 1% APPLY TO MIDDLE BACK TWICE A DAY
     Route: 061
     Dates: start: 20110303
  14. TRAMADOL [Concomitant]
     Indication: PAIN
     Dosage: 50 MG, EVERY 12 HOURS AS NEEDED
     Route: 048
     Dates: start: 20110127, end: 20110303
  15. HYDROMORPHONE HCL [Concomitant]
     Dosage: 2 MG, TAKE ONE TABLET THREE TIMES A DAY
     Route: 048
     Dates: start: 20110310
  16. LUNESTA [Concomitant]
     Indication: SLEEP APNOEA SYNDROME
     Dosage: 2 MG, TAKE ONE TABLET EVERY NIGHT AS NEEDED
     Route: 048
     Dates: start: 20110314
  17. ATARAX [Concomitant]
     Indication: ANXIETY
     Dosage: 25 MG EVERY DAY AS NEEDED
     Route: 048
     Dates: start: 20110214, end: 20110314
  18. HYDROXYZINE [Concomitant]
  19. GABAPENTIN [Concomitant]
  20. MIRTAZAPINE [Concomitant]
  21. PROPRANOLOL [Concomitant]
  22. DICLOFENAC [Concomitant]

REACTIONS (9)
  - Deep vein thrombosis [None]
  - Thrombosis [None]
  - Abdominal pain [None]
  - Injury [None]
  - Pain [None]
  - General physical health deterioration [None]
  - Emotional distress [None]
  - Anxiety [None]
  - Pain [None]
